FAERS Safety Report 8848242 (Version 2)
Quarter: 2015Q2

REPORT INFORMATION
  Report Type: Report from Study
  Country: US (occurrence: US)
  Receive Date: 20121018
  Receipt Date: 20150630
  Transmission Date: 20150821
  Serious: Yes (Other)
  Sender: FDA-Public Use
  Company Number: US-ROCHE-1139622

PATIENT
  Sex: Female

DRUGS (30)
  1. PROTROPIN [Suspect]
     Active Substance: SOMATREM
     Dosage: PER DOSE (0.28 ML)
     Route: 058
  2. CORTISPORIN OTIC [Concomitant]
     Dosage: 2 3 DROPS TO BE APPLIED TO EARS
     Route: 065
  3. GUAIFENESIN/SULFAMETHOXAZOLE/TRIMETHOPRIM [Concomitant]
     Route: 048
  4. RISPERDAL [Concomitant]
     Active Substance: RISPERIDONE
     Dosage: AT BED TIME AND 0.5 MG EVERY OTHE RDAY
     Route: 048
  5. MILKINOL [Concomitant]
     Dosage: ONE TEASPOON
     Route: 048
  6. HYDROCORTISONE. [Concomitant]
     Active Substance: HYDROCORTISONE
     Dosage: 1% STRENGTH
     Route: 061
  7. PROTROPIN [Suspect]
     Active Substance: SOMATREM
     Dosage: 0.28 ML
     Route: 058
  8. RITALIN [Concomitant]
     Active Substance: METHYLPHENIDATE HYDROCHLORIDE
  9. VENTOLIN [Concomitant]
     Active Substance: ALBUTEROL SULFATE
  10. ATARAX [Concomitant]
     Active Substance: HYDROXYZINE\HYDROXYZINE HYDROCHLORIDE
     Dosage: 6 ML
     Route: 048
  11. HYDROCORTISONE. [Concomitant]
     Active Substance: HYDROCORTISONE
     Indication: LICHEN SCLEROSUS
     Route: 048
  12. PROTROPIN [Suspect]
     Active Substance: SOMATREM
     Indication: GROWTH HORMONE DEFICIENCY
     Dosage: DILUTED WITH 2 ML
     Route: 058
     Dates: start: 19930713
  13. SYNALAR CREAM [Concomitant]
     Dosage: 2 TO 3 TIMES A DAY
     Route: 065
  14. HYDRALAZINE [Concomitant]
     Active Substance: HYDRALAZINE HYDROCHLORIDE
     Dosage: AS REQUIRED
     Route: 048
  15. PROTROPIN [Suspect]
     Active Substance: SOMATREM
     Dosage: PER DOSE (0.3 ML)
     Route: 058
  16. NUTROPIN [Concomitant]
     Active Substance: SOMATROPIN
     Indication: DWARFISM
     Route: 058
  17. ZYRTEC [Concomitant]
     Active Substance: CETIRIZINE HYDROCHLORIDE
     Dosage: AS NEEDED
     Route: 048
  18. RISPERDAL [Concomitant]
     Active Substance: RISPERIDONE
     Dosage: AT BEDTIME ALTERNATE WITH 1.0MG DOSE
     Route: 048
  19. PROTROPIN [Suspect]
     Active Substance: SOMATREM
     Route: 058
  20. NUTROPIN [Concomitant]
     Active Substance: SOMATROPIN
     Route: 058
  21. ALLERGY SHOT [Concomitant]
     Active Substance: UNSPECIFIED INGREDIENT
     Route: 065
  22. GUAIFED [Concomitant]
     Dosage: 30 MG/5 ML SYRUP
     Route: 048
  23. CLARITIN [Concomitant]
     Active Substance: LORATADINE
     Indication: SEASONAL ALLERGY
     Dosage: AS NEEDED
     Route: 048
  24. SEPTRA [Concomitant]
     Active Substance: SULFAMETHOXAZOLE\TRIMETHOPRIM
     Indication: SINUSITIS
     Dosage: ONE TABLET
     Route: 048
  25. PROTROPIN [Suspect]
     Active Substance: SOMATREM
     Indication: NOONAN SYNDROME
     Route: 058
  26. CONCERTA [Concomitant]
     Active Substance: METHYLPHENIDATE HYDROCHLORIDE
     Dosage: 1 TABLET
     Route: 048
  27. PROTROPIN [Suspect]
     Active Substance: SOMATREM
     Indication: HYPOTHALAMO-PITUITARY DISORDER
     Dosage: 0.3 ML
     Route: 058
  28. PROTROPIN [Suspect]
     Active Substance: SOMATREM
     Route: 058
  29. NUTROPIN [Concomitant]
     Active Substance: SOMATROPIN
     Indication: GROWTH HORMONE DEFICIENCY
     Route: 058
  30. COLACE [Concomitant]
     Active Substance: DOCUSATE SODIUM
     Route: 048

REACTIONS (20)
  - Dysphemia [Unknown]
  - Sinusitis [Unknown]
  - Constipation [Unknown]
  - Seborrhoea [Unknown]
  - Disturbance in attention [Unknown]
  - Hypersensitivity [Unknown]
  - Headache [Unknown]
  - Acne [Unknown]
  - Haemorrhage [Unknown]
  - Malpositioned teeth [Unknown]
  - Dizziness [Unknown]
  - Abdominal symptom [Unknown]
  - Urinary tract infection [Unknown]
  - Tympanic membrane disorder [Unknown]
  - Pterygium colli [Unknown]
  - Malaise [Unknown]
  - Bone disorder [Unknown]
  - Pruritus [Unknown]
  - Appetite disorder [Unknown]
  - Contusion [Unknown]
